FAERS Safety Report 25741593 (Version 2)
Quarter: 2025Q3

REPORT INFORMATION
  Report Type: Report from Study
  Country: US (occurrence: US)
  Receive Date: 20250829
  Receipt Date: 20250913
  Transmission Date: 20251021
  Serious: Yes (Hospitalization)
  Sender: ABBVIE
  Company Number: US-ABBVIE-6435411

PATIENT
  Sex: Female

DRUGS (1)
  1. RINVOQ [Suspect]
     Active Substance: UPADACITINIB
     Indication: Rheumatoid arthritis
     Route: 048
     Dates: start: 202402

REACTIONS (5)
  - Blood potassium decreased [Recovering/Resolving]
  - Hernia [Recovering/Resolving]
  - Asthenia [Recovering/Resolving]
  - Gastrooesophageal reflux disease [Recovering/Resolving]
  - Dehydration [Unknown]
